FAERS Safety Report 24689109 (Version 1)
Quarter: 2024Q4

REPORT INFORMATION
  Report Type: Spontaneous
  Country: JP (occurrence: JP)
  Receive Date: 20241203
  Receipt Date: 20241203
  Transmission Date: 20250114
  Serious: Yes (Death)
  Sender: ROCHE
  Company Number: JP-CHUGAI-2024041740AA

PATIENT
  Age: 8 Decade
  Sex: Male

DRUGS (1)
  1. ROZLYTREK [Suspect]
     Active Substance: ENTRECTINIB
     Indication: Non-small cell lung cancer
     Dosage: UNK
     Route: 050

REACTIONS (1)
  - Myocardial infarction [Fatal]
